FAERS Safety Report 10402324 (Version 1)
Quarter: 2014Q1

REPORT INFORMATION
  Report Type: Spontaneous
  Country: US (occurrence: None)
  Receive Date: 20130815
  Receipt Date: 20130815
  Transmission Date: 20141002
  Serious: Yes (Hospitalization, Other)
  Sender: FDA-Public Use
  Company Number: ADR-2013-00023

PATIENT
  Sex: Male

DRUGS (1)
  1. LIORESAL INTRATHECAL (BACLOFEN INJECTION)2000 MCG/ML [Suspect]
     Indication: MUSCLE SPASTICITY
     Dosage: 692.5 MCG/DAY

REACTIONS (7)
  - Drug withdrawal syndrome [None]
  - Insomnia [None]
  - Pain [None]
  - Irritability [None]
  - Muscle spasticity [None]
  - Blood creatine phosphokinase increased [None]
  - Constipation [None]
